FAERS Safety Report 4452879-5 (Version None)
Quarter: 2004Q3

REPORT INFORMATION
  Report Type: 
  Country: None (occurrence: None)
  Receive Date: 20040916
  Receipt Date: 20040903
  Transmission Date: 20050211
  Serious: Yes (Hospitalization)
  Sender: FDA-Public Use
  Company Number: 2004UW18650

PATIENT
  Age: 49 Year
  Sex: Male
  Weight: 88.4514 kg

DRUGS (2)
  1. PRILOSEC OTC [Suspect]
     Indication: DYSPEPSIA
     Dosage: 1 DF DAILY PO
     Route: 048
     Dates: start: 20040722, end: 20040725
  2. ZANTAC [Concomitant]

REACTIONS (10)
  - ABDOMINAL DISTENSION [None]
  - ABDOMINAL PAIN UPPER [None]
  - ACHLORHYDRIA [None]
  - CONSTIPATION [None]
  - GASTROINTESTINAL DISORDER [None]
  - INSOMNIA [None]
  - INTESTINAL OBSTRUCTION [None]
  - MUSCLE CRAMP [None]
  - POST PROCEDURAL VOMITING [None]
  - VOMITING [None]
